FAERS Safety Report 4947622-7 (Version None)
Quarter: 2006Q1

REPORT INFORMATION
  Report Type: 
  Country: None (occurrence: None)
  Receive Date: 20060320
  Receipt Date: 20060308
  Transmission Date: 20060701
  Serious: Yes (Hospitalization, Other)
  Sender: FDA-Public Use
  Company Number: NSADSS2003003226

PATIENT
  Age: 64 Year
  Sex: Female

DRUGS (6)
  1. REMICADE [Suspect]
     Route: 041
     Dates: start: 20010921
  2. REMICADE [Suspect]
     Indication: RHEUMATOID ARTHRITIS
     Route: 041
     Dates: start: 20010921
  3. PREDNISONE [Concomitant]
  4. METHOTREXATE [Concomitant]
  5. MONOPRIL [Concomitant]
  6. ATENOLOL [Concomitant]

REACTIONS (6)
  - CARDIAC TAMPONADE [None]
  - CARDIOMEGALY [None]
  - IRON DEFICIENCY ANAEMIA [None]
  - PERICARDIAL EFFUSION [None]
  - PERICARDITIS [None]
  - TUBERCULOSIS [None]
